FAERS Safety Report 16011599 (Version 5)
Quarter: 2020Q1

REPORT INFORMATION
  Report Type: Spontaneous
  Country: US (occurrence: US)
  Receive Date: 20190227
  Receipt Date: 20200103
  Transmission Date: 20200409
  Serious: No
  Sender: FDA-Public Use
  Company Number: US-PFIZER INC-2019073132

PATIENT
  Age: 61 Year
  Sex: Female
  Weight: 70.31 kg

DRUGS (7)
  1. LYRICA [Suspect]
     Active Substance: PREGABALIN
     Indication: PAIN
     Dosage: 150 MG, THREE TIMES A DAY
     Route: 048
  2. ROBAXIN [Concomitant]
     Active Substance: METHOCARBAMOL
     Dosage: 750 MG, 1 - 2 TABLETS UP TO 2 PER DAY
     Route: 048
     Dates: start: 201812
  3. LYRICA [Suspect]
     Active Substance: PREGABALIN
     Indication: BACK PAIN
  4. HYDROMORPHONE [Concomitant]
     Active Substance: HYDROMORPHONE
     Indication: PROCEDURAL PAIN
     Dosage: 4 MG, UNK
     Route: 048
     Dates: start: 20181110
  5. ROBAXIN [Concomitant]
     Active Substance: METHOCARBAMOL
     Dosage: 500 MG, AS NEEDED(1-2 PO (ORAL) BID (TWICE A DAY) PRN (AS NEEDED))
     Route: 048
  6. LYRICA [Suspect]
     Active Substance: PREGABALIN
     Indication: SCIATICA
     Dosage: 150 MG TWO THREE TIMES PER DAY
     Dates: start: 20190618
  7. LYRICA [Suspect]
     Active Substance: PREGABALIN
     Indication: NEURALGIA
     Dosage: 150 MG, THREE TIMES A DAY
     Route: 048
     Dates: start: 2008

REACTIONS (3)
  - Pain [Recovered/Resolved]
  - Intentional product misuse [Unknown]
  - Influenza like illness [Recovered/Resolved]
